FAERS Safety Report 8055618-4 (Version None)
Quarter: 2012Q1

REPORT INFORMATION
  Report Type: 
  Country: None (occurrence: None)
  Receive Date: 20120119
  Receipt Date: 20120112
  Transmission Date: 20120608
  Serious: Yes (Hospitalization, Other)
  Sender: FDA-Public Use
  Company Number: PL-JNJFOC-20110105686

PATIENT
  Sex: Female
  Weight: 54.7 kg

DRUGS (9)
  1. GOLIMUMAB [Suspect]
     Route: 058
     Dates: start: 20100921
  2. GOLIMUMAB [Suspect]
     Indication: PSORIATIC ARTHROPATHY
     Route: 058
     Dates: start: 20060822
  3. ACIDUM FOLICUM [Concomitant]
     Route: 048
     Dates: start: 20060208
  4. ACETAMINOPHEN [Concomitant]
     Route: 048
     Dates: start: 20060726
  5. KALIPOZ [Concomitant]
     Route: 048
     Dates: start: 20060217
  6. METHOTREXATE [Concomitant]
     Route: 048
     Dates: start: 20060228
  7. NAKLOFEN DUO [Concomitant]
     Route: 048
     Dates: start: 20060510
  8. PREDNISONE [Concomitant]
     Route: 048
     Dates: start: 20060510
  9. POLPRAZOL [Concomitant]
     Route: 048
     Dates: start: 20060510

REACTIONS (1)
  - BREAST CANCER [None]
